FAERS Safety Report 12388777 (Version 2)
Quarter: 2016Q2

REPORT INFORMATION
  Report Type: Spontaneous
  Country: DE (occurrence: DE)
  Receive Date: 20160520
  Receipt Date: 20160529
  Transmission Date: 20160815
  Serious: Yes (Other)
  Sender: FDA-Public Use
  Company Number: PHHY2016DE068155

PATIENT
  Sex: Female

DRUGS (1)
  1. RASILEZ [Suspect]
     Active Substance: ALISKIREN
     Indication: PRODUCT USED FOR UNKNOWN INDICATION
     Dosage: 150 MG, QD
     Route: 065
     Dates: start: 20160509

REACTIONS (4)
  - Lacrimal disorder [Unknown]
  - Face oedema [Unknown]
  - Eye swelling [Unknown]
  - Hypertension [Unknown]

NARRATIVE: CASE EVENT DATE: 201605
